FAERS Safety Report 8592717 (Version 2)
Quarter: 2012Q4

REPORT INFORMATION
  Report Type: 
  Country: US (occurrence: US)
  Receive Date: 20120602
  Receipt Date: 20120913
  Transmission Date: 20130627
  Serious: No
  Sender: FDA-Public Use
  Company Number: US-BAYER-2012-050042

PATIENT
  Age: 57 Year
  Sex: Female

DRUGS (6)
  1. ALEVE LIQUID GELS [Suspect]
     Indication: ARTHRITIS
     Dosage: 1 u, BID
     Route: 048
     Dates: start: 201107, end: 201107
  2. ALEVE CAPLET/TABLET,MIDOL EXTENDED RELIEF CAPLET [Suspect]
     Indication: ARTHRITIS
     Dosage: 1 u, BID
     Route: 048
     Dates: start: 201107, end: 201107
  3. BAYER ADVANCED ASPIRIN EXTRA STRENGTH [Suspect]
     Dosage: UNK
     Route: 048
     Dates: start: 2011
  4. VITAMIN B12 [Concomitant]
  5. VITAMIN E [Concomitant]
  6. VITAMIN D [Concomitant]

REACTIONS (3)
  - Drug ineffective [None]
  - Drug ineffective [None]
  - Abdominal discomfort [Recovered/Resolved]
